FAERS Safety Report 6258207-7 (Version None)
Quarter: 2009Q3

REPORT INFORMATION
  Report Type: 
  Country: None (occurrence: None)
  Receive Date: 20090702
  Receipt Date: 20090702
  Transmission Date: 20100115
  Serious: Yes (Disabling)
  Sender: FDA-Public Use
  Company Number: None

PATIENT
  Age: 73 Year
  Sex: Female
  Weight: 117 kg

DRUGS (1)
  1. CUBICIN [Suspect]
     Indication: DEVICE RELATED INFECTION
     Dosage: 1000 MG DAILY IV
     Route: 042
     Dates: start: 20090616, end: 20090623

REACTIONS (1)
  - BLOOD CREATINE PHOSPHOKINASE INCREASED [None]
